FAERS Safety Report 6449084-X (Version None)
Quarter: 2009Q4

REPORT INFORMATION
  Report Type: 
  Country: None (occurrence: None)
  Receive Date: 20091120
  Receipt Date: 20091116
  Transmission Date: 20100525
  Serious: Yes (Death)
  Sender: FDA-Public Use
  Company Number: FR-ROCHE-669714

PATIENT
  Age: 80 Year
  Sex: Male

DRUGS (1)
  1. METHOXY POLYETHYLENE GLYCOL-EPOETIN BETA [Suspect]
     Dosage: FORM: PREFILLED SYRINGE; DOSE: 121 IU
     Route: 058
     Dates: start: 20090416

REACTIONS (1)
  - DEATH [None]
